FAERS Safety Report 8574084-3 (Version None)
Quarter: 2012Q3

REPORT INFORMATION
  Report Type: 
  Country: None (occurrence: None)
  Receive Date: 20120806
  Receipt Date: 20120731
  Transmission Date: 20120928
  Serious: Yes (Other)
  Sender: FDA-Public Use
  Company Number: PHFR2012GB001525

PATIENT
  Age: 36 Year
  Sex: Female

DRUGS (5)
  1. BACLOFEN [Suspect]
     Dosage: 5 MG, TID
     Route: 048
     Dates: end: 20111209
  2. CLONAZEPAM [Suspect]
     Dosage: 2 MG, QD
     Route: 048
  3. AMITRIPTYLINE HCL [Suspect]
     Dosage: 25 MG, QD
     Route: 048
  4. PREGABALIN [Suspect]
     Indication: PAIN
     Dosage: 150 MG, BID
     Route: 048
     Dates: start: 20111203, end: 20111209
  5. NEUROBLOC [Suspect]
     Indication: DYSTONIA
     Dosage: 10000 IU, FOR EVERY 16 WEEKS
     Route: 030
     Dates: start: 20090604

REACTIONS (2)
  - ABORTION SPONTANEOUS [None]
  - MATERNAL EXPOSURE DURING PREGNANCY [None]
